FAERS Safety Report 4391087-3 (Version None)
Quarter: 2004Q2

REPORT INFORMATION
  Report Type: 
  Country: None (occurrence: None)
  Receive Date: 20040621
  Receipt Date: 20031125
  Transmission Date: 20050107
  Serious: Yes (Hospitalization, Other)
  Sender: FDA-Public Use
  Company Number: USA-2003-0009388

PATIENT
  Age: 22 Year
  Sex: Male

DRUGS (1)
  1. OXYCONTIN [Suspect]
     Dosage: 40 MG, DAILY, NASAL
     Route: 045
     Dates: start: 20021201

REACTIONS (3)
  - DEPRESSED MOOD [None]
  - DRUG ABUSER [None]
  - DRUG DEPENDENCE [None]
